FAERS Safety Report 8251973-0 (Version None)
Quarter: 2012Q2

REPORT INFORMATION
  Report Type: 
  Country: None (occurrence: None)
  Receive Date: 20120402
  Receipt Date: 20120327
  Transmission Date: 20120825
  Serious: Yes (Other)
  Sender: FDA-Public Use
  Company Number: CHPA2012US001110

PATIENT
  Age: 48 Year
  Sex: Female

DRUGS (4)
  1. EXCEDRIN EXTRA STRENGTH TABLETS [Suspect]
     Dosage: UNK , UNK
     Route: 048
     Dates: start: 20050101, end: 20120101
  2. EXCEDRIN EXTRA STRENGTH TABLETS [Suspect]
     Indication: HEADACHE
     Dosage: 2 DF, BID
     Route: 048
     Dates: start: 20120101, end: 20120101
  3. AVONEX [Suspect]
     Indication: MULTIPLE SCLEROSIS
  4. COPAXONE [Concomitant]
     Indication: MULTIPLE SCLEROSIS
     Dosage: 1 INJECTION, QD
     Route: 058
     Dates: start: 20100101

REACTIONS (9)
  - CHILLS [None]
  - HYPOAESTHESIA [None]
  - THERAPEUTIC RESPONSE UNEXPECTED [None]
  - MOBILITY DECREASED [None]
  - PYREXIA [None]
  - CENTRAL NERVOUS SYSTEM LESION [None]
  - PAIN IN EXTREMITY [None]
  - PAIN [None]
  - DRUG INEFFECTIVE [None]
